FAERS Safety Report 8546898 (Version 4)
Quarter: 2020Q1

REPORT INFORMATION
  Report Type: Spontaneous
  Country: CH (occurrence: CH)
  Receive Date: 20120504
  Receipt Date: 20200318
  Transmission Date: 20200409
  Serious: Yes (Hospitalization)
  Sender: FDA-Public Use
  Company Number: PHHY2012CH035758

PATIENT
  Age: 47 Year
  Sex: Male
  Weight: 65 kg

DRUGS (5)
  1. FINGOLIMOD. [Suspect]
     Active Substance: FINGOLIMOD
     Indication: MULTIPLE SCLEROSIS
     Route: 048
  2. LOSARTAN. [Concomitant]
     Active Substance: LOSARTAN
     Indication: HYPERTENSION
     Dosage: UNK UKN, UNK
     Route: 065
  3. CELECOXIB. [Suspect]
     Active Substance: CELECOXIB
     Indication: PSORIASIS
     Route: 065
     Dates: start: 2007
  4. AMLODIPINE [Concomitant]
     Active Substance: AMLODIPINE BESYLATE
     Indication: HYPERTENSION
     Dosage: UNK UKN, UNK
     Route: 065
  5. HYDROCHLOROTHIAZIDE ^LECIVA^ [Concomitant]
     Indication: HYPERTENSION
     Dosage: UNK UKN, UNK
     Route: 065

REACTIONS (16)
  - Dyspnoea exertional [Recovering/Resolving]
  - Fatigue [Unknown]
  - Atrial fibrillation [Recovering/Resolving]
  - Pyrexia [Recovering/Resolving]
  - Orthopnoea [Recovering/Resolving]
  - Dizziness [Unknown]
  - Hypertension [Unknown]
  - Oedema peripheral [Recovering/Resolving]
  - Polyuria [Unknown]
  - Nocturia [Unknown]
  - Mitral valve incompetence [Recovering/Resolving]
  - Pulmonary hypertension [Recovering/Resolving]
  - Palpitations [Recovering/Resolving]
  - Angina pectoris [Recovering/Resolving]
  - Cardiac failure congestive [Recovering/Resolving]
  - Endocarditis [Recovering/Resolving]
